FAERS Safety Report 15907511 (Version 5)
Quarter: 2020Q2

REPORT INFORMATION
  Report Type: Spontaneous
  Country: US (occurrence: US)
  Receive Date: 20190204
  Receipt Date: 20200604
  Transmission Date: 20200713
  Serious: Yes (Hospitalization, Other)
  Sender: FDA-Public Use
  Company Number: US-SA-2019SA028330

PATIENT

DRUGS (1)
  1. AUBAGIO [Suspect]
     Active Substance: TERIFLUNOMIDE
     Indication: MULTIPLE SCLEROSIS
     Dosage: 14 MG, QD
     Route: 048
     Dates: start: 20171118

REACTIONS (9)
  - Paraesthesia [Unknown]
  - Memory impairment [Unknown]
  - Localised infection [Unknown]
  - Multiple sclerosis relapse [Unknown]
  - Product dose omission [Unknown]
  - Flatulence [Unknown]
  - Pruritus [Unknown]
  - Colonoscopy [Unknown]
  - Ingrown hair [Unknown]

NARRATIVE: CASE EVENT DATE: 201910
